FAERS Safety Report 25179165 (Version 3)
Quarter: 2025Q2

REPORT INFORMATION
  Report Type: Report from Study
  Country: US (occurrence: US)
  Receive Date: 20250409
  Receipt Date: 20250626
  Transmission Date: 20250716
  Serious: Yes (Death, Hospitalization, Other)
  Sender: EISAI
  Company Number: US-Eisai-EC-2024-180179

PATIENT
  Age: 68 Year
  Sex: Female

DRUGS (1)
  1. LEQEMBI [Suspect]
     Active Substance: LECANEMAB-IRMB
     Indication: Dementia Alzheimer^s type
     Dates: start: 20241014, end: 20241111

REACTIONS (5)
  - Death [Fatal]
  - Cerebrovascular accident [Unknown]
  - Hypercapnia [Recovering/Resolving]
  - Wernicke^s encephalopathy [Recovering/Resolving]
  - Urinary tract infection [Unknown]

NARRATIVE: CASE EVENT DATE: 20241118
